FAERS Safety Report 17527305 (Version 3)
Quarter: 2020Q2

REPORT INFORMATION
  Report Type: Spontaneous
  Country: US (occurrence: US)
  Receive Date: 20200311
  Receipt Date: 20200515
  Transmission Date: 20200713
  Serious: Yes (Hospitalization, Other)
  Sender: FDA-Public Use
  Company Number: US-GLAXOSMITHKLINE-US2020039920

PATIENT
  Age: 65 Year
  Sex: Male

DRUGS (2)
  1. NUCALA [Suspect]
     Active Substance: MEPOLIZUMAB
     Indication: PRODUCT USED FOR UNKNOWN INDICATION
     Dosage: UNK
     Dates: start: 202001
  2. VARICELLA-ZOSTER VACCINE NOS [Suspect]
     Active Substance: VARICELLA-ZOSTER VACCINE
     Indication: PROPHYLAXIS
     Dates: start: 20200129

REACTIONS (3)
  - Pneumonia [Recovering/Resolving]
  - Sinusitis [Recovering/Resolving]
  - Bronchial secretion retention [Recovering/Resolving]

NARRATIVE: CASE EVENT DATE: 20200130
